FAERS Safety Report 14290746 (Version 3)
Quarter: 2019Q1

REPORT INFORMATION
  Report Type: Spontaneous
  Country: IT (occurrence: IT)
  Receive Date: 20171215
  Receipt Date: 20190204
  Transmission Date: 20190417
  Serious: Yes (Other)
  Sender: FDA-Public Use
  Company Number: IT-MYLANLABS-2017M1077135

PATIENT
  Age: 33 Year
  Sex: Male
  Weight: 100 kg

DRUGS (29)
  1. LANSOPRAZOLE. [Suspect]
     Active Substance: LANSOPRAZOLE
     Indication: PRODUCT USED FOR UNKNOWN INDICATION
     Dosage: 60 MG, TOTAL
     Route: 048
     Dates: start: 20171112, end: 20171112
  2. AKINETON [Suspect]
     Active Substance: BIPERIDEN HYDROCHLORIDE
     Indication: PRODUCT USED FOR UNKNOWN INDICATION
     Dosage: 40 MG, TOTAL
     Route: 048
     Dates: start: 20171112, end: 20171112
  3. AKINETON [Suspect]
     Active Substance: BIPERIDEN HYDROCHLORIDE
     Dosage: UNK
     Route: 048
  4. LORMETAZEPAM [Suspect]
     Active Substance: LORMETAZEPAM
     Indication: PRODUCT USED FOR UNKNOWN INDICATION
     Dosage: 12 MG, TOTAL
     Route: 048
     Dates: start: 20171112, end: 20171112
  5. QUETIAPINE. [Suspect]
     Active Substance: QUETIAPINE
     Indication: PRODUCT USED FOR UNKNOWN INDICATION
     Dosage: 1600 MG, TOTAL
     Route: 048
     Dates: start: 20171112, end: 20171112
  6. HALDOL [Suspect]
     Active Substance: HALOPERIDOL
     Dosage: UNK
     Route: 048
  7. LORMETAZEPAM [Suspect]
     Active Substance: LORMETAZEPAM
     Dosage: 6 DOSAGE FORM, TOTAL
     Route: 048
     Dates: start: 20171112, end: 20171112
  8. QUETIAPINA ACCORD [Suspect]
     Active Substance: QUETIAPINE
     Indication: PRODUCT USED FOR UNKNOWN INDICATION
     Dosage: 8 DOSAGE FORM, TOTAL
     Route: 048
     Dates: start: 20171112, end: 20171112
  9. RISPERIDONE. [Suspect]
     Active Substance: RISPERIDONE
     Dosage: UNK
     Route: 048
  10. LANSOPRAZOLE. [Suspect]
     Active Substance: LANSOPRAZOLE
     Dosage: UNK
     Route: 048
  11. LORAZEPAM. [Suspect]
     Active Substance: LORAZEPAM
     Dosage: 2.5 MG, UNK
     Route: 048
     Dates: start: 20171112, end: 20171112
  12. LORMETAZEPAM [Suspect]
     Active Substance: LORMETAZEPAM
     Dosage: UNK
     Route: 048
  13. QUETIAPINE. [Suspect]
     Active Substance: QUETIAPINE
     Dosage: 200 MG, TOTAL
     Route: 048
     Dates: start: 20171112, end: 20171112
  14. RISPERIDONE. [Suspect]
     Active Substance: RISPERIDONE
     Indication: PRODUCT USED FOR UNKNOWN INDICATION
     Dosage: 6 MG, TOTAL
     Route: 048
     Dates: start: 20171112, end: 20171112
  15. RISPERIDONE. [Suspect]
     Active Substance: RISPERIDONE
     Dosage: 2 MG, TOTAL
     Route: 048
     Dates: start: 20171112, end: 20171112
  16. AKINETON [Suspect]
     Active Substance: BIPERIDEN HYDROCHLORIDE
     Dosage: 4 MG, TOTAL
     Route: 048
     Dates: start: 20171112, end: 20171112
  17. AKINETON [Suspect]
     Active Substance: BIPERIDEN HYDROCHLORIDE
     Dosage: 10 DOSAGE FORM, TOTAL
     Route: 048
     Dates: start: 20171112, end: 20171112
  18. LANSOPRAZOLE. [Suspect]
     Active Substance: LANSOPRAZOLE
     Dosage: 15 MG, TOTAL
     Route: 048
     Dates: start: 20171112, end: 20171112
  19. LORAZEPAM. [Suspect]
     Active Substance: LORAZEPAM
     Indication: PRODUCT USED FOR UNKNOWN INDICATION
     Dosage: 25 MG, TOTAL
     Route: 048
     Dates: start: 20171112, end: 20171112
  20. LORAZEPAM. [Suspect]
     Active Substance: LORAZEPAM
     Dosage: 12 MG, UNK
     Dates: start: 20171112, end: 20171112
  21. LORAZEPAM. [Suspect]
     Active Substance: LORAZEPAM
     Dosage: 10 DOSAGE FORM, TOTAL
     Route: 048
     Dates: start: 20171112, end: 20171112
  22. HALDOL [Suspect]
     Active Substance: HALOPERIDOL
     Dosage: 1 MG, TOTAL
     Route: 048
     Dates: start: 20171112, end: 20171112
  23. ZUCLOPENTHIXOL DIHYDROCHLORIDE [Suspect]
     Active Substance: ZUCLOPENTHIXOL HYDROCHLORIDE
     Indication: PRODUCT USED FOR UNKNOWN INDICATION
     Dosage: 20 MG, TOTAL
     Route: 048
     Dates: start: 20171112, end: 20171112
  24. RISPERIDONE. [Suspect]
     Active Substance: RISPERIDONE
     Dosage: 3 DOSAGE FORM, TOTAL
     Route: 048
     Dates: start: 20171112, end: 20171112
  25. LANSOPRAZOLE. [Suspect]
     Active Substance: LANSOPRAZOLE
     Dosage: 4 DOSAGE FORM, TOTAL
     Route: 048
     Dates: start: 20171112, end: 20171112
  26. HALDOL [Suspect]
     Active Substance: HALOPERIDOL
     Indication: PRODUCT USED FOR UNKNOWN INDICATION
     Dosage: 4 MG, TOTAL
     Route: 048
     Dates: start: 20171112, end: 20171112
  27. LORMETAZEPAM [Suspect]
     Active Substance: LORMETAZEPAM
     Dosage: 2 MG, TOTAL
     Route: 048
     Dates: start: 20171112, end: 20171112
  28. QUETIAPINE. [Suspect]
     Active Substance: QUETIAPINE
     Dosage: UNK
     Route: 048
  29. LORAZEPAM. [Suspect]
     Active Substance: LORAZEPAM
     Dosage: UNK
     Route: 048

REACTIONS (3)
  - Intentional product misuse [Unknown]
  - Intentional self-injury [Unknown]
  - Self-injurious ideation [Unknown]

NARRATIVE: CASE EVENT DATE: 20171112
